FAERS Safety Report 26162369 (Version 1)
Quarter: 2025Q4

REPORT INFORMATION
  Report Type: Spontaneous
  Country: JP (occurrence: JP)
  Receive Date: 20251216
  Receipt Date: 20251216
  Transmission Date: 20260118
  Serious: Yes (Other)
  Sender: MYLAN
  Company Number: JP-MYLANLABS-2025M1092681

PATIENT
  Age: 34 Year
  Sex: Female
  Weight: 57 kg

DRUGS (4)
  1. SOLANAX [Suspect]
     Active Substance: ALPRAZOLAM
     Indication: Depression
     Dosage: 0.4 MILLIGRAMS, THREE TIMES A DAY (AFTER BREAKFAST, LUNCH, AND DINNER)
     Route: 061
     Dates: start: 20010821, end: 20010904
  2. SOLANAX [Suspect]
     Active Substance: ALPRAZOLAM
     Indication: Anxiety
     Dosage: 0.4 MILLIGRAMS, THREE TIMES A DAY (AFTER BREAKFAST, LUNCH, AND DINNER)
     Route: 048
     Dates: start: 20010821, end: 20010904
  3. SOLANAX [Suspect]
     Active Substance: ALPRAZOLAM
     Dosage: 0.4 MILLIGRAMS, THREE TIMES A DAY (AFTER BREAKFAST, LUNCH, AND DINNER)
     Route: 048
     Dates: start: 20010821, end: 20010904
  4. SOLANAX [Suspect]
     Active Substance: ALPRAZOLAM
     Dosage: 0.4 MILLIGRAMS, THREE TIMES A DAY (AFTER BREAKFAST, LUNCH, AND DINNER)
     Route: 061
     Dates: start: 20010821, end: 20010904

REACTIONS (8)
  - Headache [Recovered/Resolved with Sequelae]
  - Glossodynia [Recovered/Resolved with Sequelae]
  - Pain [Recovered/Resolved with Sequelae]
  - Irritability [Recovered/Resolved with Sequelae]
  - Apathy [Recovered/Resolved with Sequelae]
  - Depressed mood [Recovered/Resolved with Sequelae]
  - Drug withdrawal syndrome [Recovered/Resolved with Sequelae]
  - Anxiety [Recovered/Resolved with Sequelae]

NARRATIVE: CASE EVENT DATE: 20010905
